FAERS Safety Report 5846166-8 (Version None)
Quarter: 2008Q3

REPORT INFORMATION
  Report Type: 
  Country: None (occurrence: None)
  Receive Date: 20080814
  Receipt Date: 20080808
  Transmission Date: 20090109
  Serious: Yes (Hospitalization)
  Sender: FDA-Public Use
  Company Number: BE-PFIZER INC-2008066427

PATIENT
  Age: 52 Year
  Sex: Female

DRUGS (6)
  1. SERLAIN [Suspect]
     Indication: DEPRESSION
     Dosage: TEXT:20-40 MG DAILY
     Dates: start: 20020801, end: 20050101
  2. TRAZOLAN [Suspect]
     Indication: DEPRESSION
     Dosage: DAILY DOSE:150MG-TEXT:DAILY
  3. LORAZEPAM [Suspect]
     Indication: INSOMNIA
     Dosage: DAILY DOSE:2.5MG-TEXT:DAILY
  4. ALPRAZOLAM [Suspect]
     Indication: INSOMNIA
     Dosage: DAILY DOSE:.5MG-TEXT:DAILY
  5. RISPERIDONE [Suspect]
     Indication: NEUROLEPTIC MALIGNANT SYNDROME
     Dosage: DAILY DOSE:2MG-TEXT:DAILY
  6. VENLAFAXINE HCL [Suspect]
     Indication: DEPRESSION
     Dosage: DAILY DOSE:75MG-TEXT:DAILY

REACTIONS (1)
  - OSTEOPOROSIS [None]
